FAERS Safety Report 6570006-5 (Version None)
Quarter: 2010Q1

REPORT INFORMATION
  Report Type: 
  Country: None (occurrence: None)
  Receive Date: 20100204
  Receipt Date: 20100126
  Transmission Date: 20100710
  Serious: Yes (Other)
  Sender: FDA-Public Use
  Company Number: US-ROCHE-635409

PATIENT
  Sex: Female
  Weight: 54.4 kg

DRUGS (1)
  1. CAPECITABINE [Suspect]
     Dosage: DOSE: 2000 MG AM AND 1500 MG PM
     Route: 048
     Dates: start: 20090219, end: 20100104

REACTIONS (3)
  - ASTHENIA [None]
  - FATIGUE [None]
  - TUMOUR MARKER INCREASED [None]
